FAERS Safety Report 5981028-7 (Version None)
Quarter: 2008Q4

REPORT INFORMATION
  Report Type: 
  Country: None (occurrence: None)
  Receive Date: 20081205
  Receipt Date: 20081003
  Transmission Date: 20090506
  Serious: No
  Sender: FDA-Public Use
  Company Number: A0750445A

PATIENT
  Age: 44 Year
  Sex: Male

DRUGS (1)
  1. COMMIT [Suspect]

REACTIONS (2)
  - DISCOMFORT [None]
  - GINGIVAL RECESSION [None]
